FAERS Safety Report 7299480-6 (Version None)
Quarter: 2011Q1

REPORT INFORMATION
  Report Type: 
  Country: None (occurrence: None)
  Receive Date: 20110217
  Receipt Date: 20110126
  Transmission Date: 20110831
  Serious: No
  Sender: FDA-Public Use
  Company Number: US-B.I. PHARMACEUTICALS,INC./RIDGEFIELD-2011-BP-02761BP

PATIENT
  Sex: Female

DRUGS (20)
  1. ALBUTEROL [Concomitant]
     Indication: CHRONIC OBSTRUCTIVE PULMONARY DISEASE
  2. OXYGEN [Concomitant]
     Indication: CHRONIC OBSTRUCTIVE PULMONARY DISEASE
  3. OXYGEN [Concomitant]
     Indication: ASTHMA
  4. FISH OIL [Concomitant]
     Indication: PROPHYLAXIS
  5. ALBUTEROL [Concomitant]
     Indication: ASTHMA
  6. TRAZODONE [Concomitant]
     Indication: INSOMNIA
  7. OMEPRAZOLE [Concomitant]
     Indication: GASTROOESOPHAGEAL REFLUX DISEASE
  8. CLARITIN [Concomitant]
     Indication: SEASONAL ALLERGY
  9. PULMICORT [Concomitant]
     Indication: CHRONIC OBSTRUCTIVE PULMONARY DISEASE
  10. XANAX [Concomitant]
     Indication: INSOMNIA
  11. SYSTANE [Concomitant]
     Indication: DRY EYE
  12. SPIRIVA [Suspect]
     Indication: ASTHMA
     Dosage: 18 MCG
     Route: 048
     Dates: start: 20110126
  13. OTC EYE DROPS [Concomitant]
     Indication: DRY EYE
  14. PULMICORT [Concomitant]
     Indication: ASTHMA
  15. SPIRIVA [Suspect]
     Indication: CHRONIC OBSTRUCTIVE PULMONARY DISEASE
     Dosage: 18 MCG
     Route: 055
  16. LEVOTHYROXINE SODIUM [Concomitant]
     Indication: HYPOTHYROIDISM
  17. ASTELIN [Concomitant]
     Indication: NASAL CONGESTION
  18. CLARITIN [Concomitant]
     Indication: HYPERSENSITIVITY
  19. MUCINEX [Concomitant]
     Indication: COUGH
  20. MUCINEX [Concomitant]
     Indication: INCREASED UPPER AIRWAY SECRETION

REACTIONS (4)
  - CONSTIPATION [None]
  - INCORRECT ROUTE OF DRUG ADMINISTRATION [None]
  - HYPERTENSION [None]
  - BARRETT'S OESOPHAGUS [None]
